FAERS Safety Report 13234561 (Version 2)
Quarter: 2017Q1

REPORT INFORMATION
  Report Type: Spontaneous
  Country: US (occurrence: US)
  Receive Date: 20170215
  Receipt Date: 20170301
  Transmission Date: 20170428
  Serious: No
  Sender: FDA-Public Use
  Company Number: US-PFIZER INC-2017059211

PATIENT
  Age: 78 Year
  Sex: Female

DRUGS (8)
  1. FORMALDEHYDE. [Suspect]
     Active Substance: FORMALDEHYDE
  2. VITAMIN B12 [Suspect]
     Active Substance: CYANOCOBALAMIN
     Dosage: UNK
  3. MOBIC [Suspect]
     Active Substance: MELOXICAM
     Dosage: UNK
  4. NOVOCAINE [Suspect]
     Active Substance: PROCAINE
     Dosage: UNK
  5. MELOXICAM. [Suspect]
     Active Substance: MELOXICAM
     Dosage: UNK
  6. MORPHINE SULFATE. [Suspect]
     Active Substance: MORPHINE SULFATE
  7. XYLOCAINE [Suspect]
     Active Substance: LIDOCAINE HYDROCHLORIDE
     Dosage: UNK
  8. SULFURIC ACID [Suspect]
     Active Substance: SULFURIC ACID
     Dosage: UNK

REACTIONS (1)
  - Drug hypersensitivity [Unknown]
